FAERS Safety Report 8485698-3 (Version None)
Quarter: 2012Q3

REPORT INFORMATION
  Report Type: 
  Country: None (occurrence: None)
  Receive Date: 20120703
  Receipt Date: 20120630
  Transmission Date: 20120928
  Serious: No
  Sender: FDA-Public Use
  Company Number: US-PFIZER INC-2012157041

PATIENT
  Sex: Female

DRUGS (1)
  1. IBUPROFEN (ADVIL) [Suspect]
     Indication: HEADACHE
     Dosage: UNK
     Dates: start: 20120601

REACTIONS (5)
  - GASTRIC DISORDER [None]
  - FEELING ABNORMAL [None]
  - HEADACHE [None]
  - DYSPNOEA [None]
  - DIARRHOEA [None]
